FAERS Safety Report 14445476 (Version 1)
Quarter: 2018Q1

REPORT INFORMATION
  Report Type: Spontaneous
  Country: LV (occurrence: LV)
  Receive Date: 20180126
  Receipt Date: 20180126
  Transmission Date: 20180509
  Serious: Yes (Hospitalization)
  Sender: FDA-Public Use
  Company Number: US-ASTRAZENECA-2018SE10869

PATIENT
  Age: 0 Year
  Sex: Male
  Weight: 4.5 kg

DRUGS (1)
  1. SYNAGIS [Suspect]
     Active Substance: PALIVIZUMAB
     Indication: RESPIRATORY SYNCYTIAL VIRUS INFECTION
     Dosage: 0.7ML UNKNOWN
     Route: 030
     Dates: start: 20171208, end: 20171208

REACTIONS (3)
  - Respiratory syncytial virus test positive [Recovered/Resolved]
  - Nasopharyngitis [Recovered/Resolved]
  - Gastrooesophageal reflux disease [Unknown]

NARRATIVE: CASE EVENT DATE: 2017
